FAERS Safety Report 8054552-3 (Version None)
Quarter: 2012Q1

REPORT INFORMATION
  Report Type: 
  Country: None (occurrence: None)
  Receive Date: 20120119
  Receipt Date: 20120112
  Transmission Date: 20120608
  Serious: Yes (Other)
  Sender: FDA-Public Use
  Company Number: KW-BIOGENIDEC-2011BI046181

PATIENT
  Age: 21 Year
  Sex: Male

DRUGS (3)
  1. TYSABRI [Suspect]
     Indication: RELAPSING-REMITTING MULTIPLE SCLEROSIS
     Route: 042
     Dates: start: 20090201, end: 20111101
  2. TYSABRI [Suspect]
     Route: 042
     Dates: start: 20120101
  3. CORTICOSTEROID [Concomitant]

REACTIONS (3)
  - MULTIPLE SCLEROSIS RELAPSE [None]
  - PROGRESSIVE MULTIFOCAL LEUKOENCEPHALOPATHY [None]
  - PSYCHOTIC DISORDER [None]
